FAERS Safety Report 17105235 (Version 1)
Quarter: 2019Q4

REPORT INFORMATION
  Report Type: Spontaneous
  Country: US (occurrence: US)
  Receive Date: 20191203
  Receipt Date: 20191203
  Transmission Date: 20200122
  Serious: Yes (Hospitalization)
  Sender: FDA-Public Use
  Company Number: US-TEVA-2019-US-1146559

PATIENT
  Age: 69 Year
  Sex: Male

DRUGS (2)
  1. PREDNISONE. [Suspect]
     Active Substance: PREDNISONE
     Indication: GLOMERULONEPHRITIS
     Route: 065
  2. MYCOPHENOLATE MOFETIL. [Suspect]
     Active Substance: MYCOPHENOLATE MOFETIL
     Indication: GLOMERULONEPHRITIS
     Route: 065

REACTIONS (5)
  - Meningitis cryptococcal [Recovering/Resolving]
  - Disseminated cryptococcosis [Recovering/Resolving]
  - Encephalitis [Recovering/Resolving]
  - Meningitis bacterial [Recovering/Resolving]
  - Pneumonia cryptococcal [Recovering/Resolving]
